FAERS Safety Report 20494776 (Version 1)
Quarter: 2022Q1

REPORT INFORMATION
  Report Type: Report from Study
  Country: GR (occurrence: GR)
  Receive Date: 20220221
  Receipt Date: 20220221
  Transmission Date: 20220424
  Serious: Yes (Death, Hospitalization, Other)
  Sender: FDA-Public Use
  Company Number: GR-ELI_LILLY_AND_COMPANY-GR202103009211

PATIENT
  Age: 78 Year
  Sex: Female
  Weight: 45 kg

DRUGS (4)
  1. TERIPARATIDE [Suspect]
     Active Substance: TERIPARATIDE
     Indication: Osteoporosis
     Dosage: 20 UG, DAILY
     Route: 058
     Dates: start: 20200414
  2. DIOSMIN\HESPERIDIN [Concomitant]
     Active Substance: DIOSMIN\HESPERIDIN
     Indication: Psoriatic arthropathy
  3. METHOTREXATE [Concomitant]
     Active Substance: METHOTREXATE
     Indication: Psoriatic arthropathy
  4. LASIX [Concomitant]
     Active Substance: FUROSEMIDE
     Indication: Product used for unknown indication

REACTIONS (17)
  - Respiratory failure [Fatal]
  - Cardiac disorder [Fatal]
  - Ischaemic stroke [Not Recovered/Not Resolved]
  - Haematocrit decreased [Recovered/Resolved]
  - Pneumonia [Recovered/Resolved]
  - Heart rate increased [Unknown]
  - Dyspnoea [Unknown]
  - Asthenia [Unknown]
  - Decreased appetite [Unknown]
  - General physical health deterioration [Unknown]
  - Oxygen saturation decreased [Unknown]
  - Epilepsy [Unknown]
  - Gait disturbance [Recovered/Resolved]
  - Fall [Recovered/Resolved]
  - Head injury [Recovered/Resolved]
  - Psoriatic arthropathy [Not Recovered/Not Resolved]
  - Weight increased [Unknown]

NARRATIVE: CASE EVENT DATE: 20210301
